FAERS Safety Report 14113412 (Version 2)
Quarter: 2017Q4

REPORT INFORMATION
  Report Type: Spontaneous
  Country: KR (occurrence: KR)
  Receive Date: 20171023
  Receipt Date: 20171025
  Transmission Date: 20180321
  Serious: Yes (Hospitalization)
  Sender: FDA-Public Use
  Company Number: KR-STRIDES ARCOLAB LIMITED-2017SP013546

PATIENT

DRUGS (2)
  1. CALCIUM CITRATE [Suspect]
     Active Substance: CALCIUM CITRATE
     Indication: HYPOPARATHYROIDISM
     Dosage: 500 MG, DAILY
     Route: 065
  2. ERGOCALCIFEROL. [Suspect]
     Active Substance: ERGOCALCIFEROL
     Indication: HYPOPARATHYROIDISM
     Dosage: 50000 IU DAILY
     Route: 065

REACTIONS (6)
  - Heart injury [Unknown]
  - Prescribed overdose [Unknown]
  - Mental status changes [Unknown]
  - Myocardial infarction [Unknown]
  - Hypervitaminosis D [Unknown]
  - Hypercalcaemia [Recovered/Resolved]
